FAERS Safety Report 8586971-0 (Version None)
Quarter: 2012Q3

REPORT INFORMATION
  Report Type: 
  Country: None (occurrence: None)
  Receive Date: 20120810
  Receipt Date: 20120801
  Transmission Date: 20120928
  Serious: Yes (Other)
  Sender: FDA-Public Use
  Company Number: US-ASTRAZENECA-2012SE32517

PATIENT
  Age: 55 Year
  Sex: Male

DRUGS (2)
  1. NEXIUM [Suspect]
     Route: 048
  2. TOPROL-XL [Suspect]
     Route: 048

REACTIONS (10)
  - MYOCARDIAL INFARCTION [None]
  - RENAL NEOPLASM [None]
  - HEPATIC NEOPLASM [None]
  - SPINAL CORD NEOPLASM [None]
  - VON HIPPEL-LINDAU DISEASE [None]
  - DIABETES MELLITUS [None]
  - ADVERSE EVENT [None]
  - INTENTIONAL DRUG MISUSE [None]
  - PANCREATIC NEOPLASM [None]
  - NEUROPATHY PERIPHERAL [None]
